FAERS Safety Report 12314198 (Version 3)
Quarter: 2018Q3

REPORT INFORMATION
  Report Type: Spontaneous
  Country: US (occurrence: US)
  Receive Date: 20160428
  Receipt Date: 20180919
  Transmission Date: 20181010
  Serious: No
  Sender: FDA-Public Use
  Company Number: US-CELGENEUS-USA-2016045134

PATIENT
  Sex: Male
  Weight: 81.72 kg

DRUGS (2)
  1. OTEZLA [Suspect]
     Active Substance: APREMILAST
     Indication: GUTTATE PSORIASIS
     Dosage: 60 MILLIGRAM
     Route: 048
     Dates: start: 201512
  2. OTEZLA [Suspect]
     Active Substance: APREMILAST
     Indication: PSORIATIC ARTHROPATHY
     Dosage: 30 MILLIGRAM
     Route: 048
     Dates: end: 201604

REACTIONS (1)
  - Insomnia [Not Recovered/Not Resolved]
